FAERS Safety Report 5654647-5 (Version None)
Quarter: 2008Q1

REPORT INFORMATION
  Report Type: 
  Country: None (occurrence: None)
  Receive Date: 20080219
  Receipt Date: 20071116
  Transmission Date: 20080703
  Serious: No
  Sender: FDA-Public Use
  Company Number: WAES 0711USA03614

PATIENT
  Age: 60 Year
  Sex: Female

DRUGS (6)
  1. JANUVIA [Suspect]
     Indication: TYPE 2 DIABETES MELLITUS
     Dosage: 50MG/DAILY/PO
     Route: 048
     Dates: start: 20070801
  2. LANTUS [Concomitant]
  3. LASIX [Concomitant]
  4. TOPROL-XL [Concomitant]
  5. ZOLOFT [Concomitant]
  6. GABAPENTIN [Concomitant]

REACTIONS (4)
  - ABDOMINAL DISTENSION [None]
  - FLUID RETENTION [None]
  - RHINORRHOEA [None]
  - WHEEZING [None]
